FAERS Safety Report 5934156-6 (Version None)
Quarter: 2008Q4

REPORT INFORMATION
  Report Type: 
  Country: None (occurrence: None)
  Receive Date: 20081029
  Receipt Date: 20081024
  Transmission Date: 20090506
  Serious: Yes (Death, Hospitalization)
  Sender: FDA-Public Use
  Company Number: A0753989A

PATIENT
  Age: 59 Year
  Sex: Female
  Weight: 110.9 kg

DRUGS (4)
  1. AVANDIA [Suspect]
     Indication: DIABETES MELLITUS
     Dosage: 4MG TWICE PER DAY
     Route: 048
     Dates: start: 20041020, end: 20070301
  2. METFORMIN HYDROCHLORIDE [Concomitant]
  3. COREG [Concomitant]
  4. CYMBALTA [Concomitant]

REACTIONS (5)
  - ATRIOVENTRICULAR BLOCK [None]
  - DEATH [None]
  - ISCHAEMIC CARDIOMYOPATHY [None]
  - MYOCARDIAL INFARCTION [None]
  - PARALYSIS [None]
